FAERS Safety Report 24836686 (Version 1)
Quarter: 2025Q1

REPORT INFORMATION
  Report Type: Spontaneous
  Country: JP (occurrence: JP)
  Receive Date: 20250113
  Receipt Date: 20250113
  Transmission Date: 20250409
  Serious: Yes (Other)
  Sender: CHEPLAPHARM
  Company Number: JP-CHEPLA-2025000380

PATIENT
  Age: 4 Decade
  Sex: Female

DRUGS (9)
  1. OLANZAPINE [Suspect]
     Active Substance: OLANZAPINE
  2. HALOPERIDOL [Suspect]
     Active Substance: HALOPERIDOL
  3. RISPERIDONE [Suspect]
     Active Substance: RISPERIDONE
  4. RISPERIDONE [Suspect]
     Active Substance: RISPERIDONE
  5. CHLORPROMAZINE [Suspect]
     Active Substance: CHLORPROMAZINE
  6. LEVOMEPROMAZINE [Suspect]
     Active Substance: LEVOMEPROMAZINE
  7. CLONAZEPAM [Suspect]
     Active Substance: CLONAZEPAM
  8. CLONAZEPAM [Suspect]
     Active Substance: CLONAZEPAM
  9. CARBAMAZEPINE [Suspect]
     Active Substance: CARBAMAZEPINE

REACTIONS (5)
  - Hallucination, auditory [Unknown]
  - Drug ineffective [Unknown]
  - Cellulitis [Unknown]
  - Hypocalcaemia [Unknown]
  - Intracranial calcification [Unknown]
